FAERS Safety Report 7328122-6 (Version None)
Quarter: 2011Q1

REPORT INFORMATION
  Report Type: 
  Country: None (occurrence: None)
  Receive Date: 20110303
  Receipt Date: 20110218
  Transmission Date: 20110831
  Serious: Yes (Other)
  Sender: FDA-Public Use
  Company Number: PHHY2011BR14474

PATIENT
  Sex: Female

DRUGS (3)
  1. ATENOLOL [Concomitant]
     Dosage: UNK
  2. DIOVAN [Suspect]
     Dosage: 80 MG, UNK
  3. LOSARTAN POTASSIUM [Concomitant]
     Dosage: UNK

REACTIONS (1)
  - RENAL NEOPLASM [None]
